FAERS Safety Report 5915908-5 (Version None)
Quarter: 2008Q4

REPORT INFORMATION
  Report Type: 
  Country: None (occurrence: None)
  Receive Date: 20081010
  Receipt Date: 20080909
  Transmission Date: 20090506
  Serious: Yes (Other)
  Sender: FDA-Public Use
  Company Number: GB-PFIZER INC-2008085006

PATIENT
  Age: 13 Year
  Sex: Female

DRUGS (3)
  1. LYRICA [Suspect]
     Indication: NERVE INJURY
     Route: 048
  2. ACETAMINOPHEN [Concomitant]
  3. AMITRIPTYLINE HCL [Concomitant]

REACTIONS (7)
  - AGGRESSION [None]
  - AMNESIA [None]
  - DISTURBANCE IN ATTENTION [None]
  - MENTAL IMPAIRMENT [None]
  - PERSONALITY CHANGE [None]
  - READING DISORDER [None]
  - WEIGHT DECREASED [None]
